FAERS Safety Report 6170720-X (Version None)
Quarter: 2009Q2

REPORT INFORMATION
  Report Type: 
  Country: None (occurrence: None)
  Receive Date: 20090428
  Receipt Date: 20090421
  Transmission Date: 20091009
  Serious: Yes (Hospitalization)
  Sender: FDA-Public Use
  Company Number: US-GILEAD-2009-0019973

PATIENT
  Sex: Male
  Weight: 138 kg

DRUGS (13)
  1. LETAIRIS [Suspect]
     Indication: PULMONARY HYPERTENSION
     Route: 048
     Dates: start: 20080918, end: 20090125
  2. LETAIRIS [Suspect]
     Route: 048
     Dates: start: 20080418
  3. ATENOLOL [Concomitant]
  4. ZOCOR [Concomitant]
     Indication: HYPERLIPIDAEMIA
  5. ASPIRIN [Concomitant]
  6. BUMETANIDE [Concomitant]
     Dates: start: 20081101
  7. COUMADIN [Concomitant]
     Indication: PULMONARY EMBOLISM
  8. LASIX [Concomitant]
  9. CELEXA [Concomitant]
  10. CYCLOBENZAPRINE [Concomitant]
  11. TRAZODONE HCL [Concomitant]
  12. PROTONIX [Concomitant]
     Indication: GASTROOESOPHAGEAL REFLUX DISEASE
  13. DOCUSATE SODIUM [Concomitant]

REACTIONS (4)
  - DYSPNOEA [None]
  - PULMONARY ARTERIAL WEDGE PRESSURE INCREASED [None]
  - PULMONARY OEDEMA [None]
  - WEIGHT INCREASED [None]
